FAERS Safety Report 25111836 (Version 1)
Quarter: 2025Q1

REPORT INFORMATION
  Report Type: Spontaneous
  Country: US (occurrence: US)
  Receive Date: 20250324
  Receipt Date: 20250324
  Transmission Date: 20250408
  Serious: No
  Sender: Norvium Bioscience
  Company Number: US-Norvium Bioscience LLC-079823

PATIENT
  Age: 74 Year
  Sex: Male
  Weight: 83 kg

DRUGS (7)
  1. VENLAFAXINE HYDROCHLORIDE [Suspect]
     Active Substance: VENLAFAXINE HYDROCHLORIDE
     Indication: Affective disorder
     Route: 048
  2. ELIQUIS [Concomitant]
     Active Substance: APIXABAN
     Indication: Anticoagulant therapy
     Route: 048
  3. CRESTOR [Concomitant]
     Active Substance: ROSUVASTATIN CALCIUM
     Indication: Blood cholesterol
     Route: 048
  4. LOSARTAN [Concomitant]
     Active Substance: LOSARTAN
     Indication: Hypertension
     Route: 048
  5. BUMETANIDE [Concomitant]
     Active Substance: BUMETANIDE
     Indication: Diuretic therapy
     Route: 048
  6. MYRBETRIQ [Concomitant]
     Active Substance: MIRABEGRON
     Indication: Urinary retention
     Route: 048
  7. VYNDAMAX [Concomitant]
     Active Substance: TAFAMIDIS
     Indication: Cardiac amyloidosis
     Dates: start: 20240304

REACTIONS (1)
  - Overdose [Unknown]
